FAERS Safety Report 5266136-0 (Version None)
Quarter: 2007Q1

REPORT INFORMATION
  Report Type: 
  Country: None (occurrence: None)
  Receive Date: 20070315
  Receipt Date: 20011001
  Transmission Date: 20070707
  Serious: Yes (Other)
  Sender: FDA-Public Use
  Company Number: US-BRISTOL-MYERS SQUIBB COMPANY-13550025

PATIENT
  Age: 43 Year
  Sex: Male

DRUGS (4)
  1. SUSTIVA [Suspect]
     Dates: start: 19980701
  2. DIDANOSINE [Concomitant]
  3. HYDROXYUREA [Concomitant]
  4. ABACAVIR [Concomitant]

REACTIONS (2)
  - GLAUCOMA [None]
  - METABOLIC ACIDOSIS [None]
